FAERS Safety Report 7144567 (Version 3)
Quarter: 2013Q2

REPORT INFORMATION
  Report Type: Spontaneous
  Country: US (occurrence: US)
  Receive Date: 20091009
  Receipt Date: 20130516
  Transmission Date: 20140414
  Serious: Yes (Hospitalization, Other)
  Sender: FDA-Public Use
  Company Number: US-BAYER-200934687NA

PATIENT
  Age: 23 Year
  Sex: Female
  Weight: 102.49 kg

DRUGS (9)
  1. YASMIN [Suspect]
     Dosage: UNK
     Dates: start: 2008, end: 2009
  2. YAZ [Suspect]
     Indication: MENSTRUATION IRREGULAR
     Dosage: 1 DF (DAILY DOSE), QD,
     Dates: start: 2008, end: 20090514
  3. OCELLA [Suspect]
     Dosage: UNK
     Dates: start: 2008, end: 2009
  4. LEVAQUIN [Concomitant]
     Dosage: 500 MG, UNK
     Route: 048
     Dates: start: 20090226
  5. METHYLPREDNISOLONE [Concomitant]
     Dosage: 4 MG, UNK
     Route: 048
     Dates: start: 20090318
  6. METHYLPREDNISOLONE [Concomitant]
     Dosage: UNK
     Dates: start: 20090416
  7. CIPROFLOXACIN [Concomitant]
     Dosage: 500 MG, UNK
     Route: 048
     Dates: start: 20090428
  8. PROMETHAZINE [Concomitant]
     Dosage: 25 MG, UNK
     Route: 048
     Dates: start: 20090428
  9. PROVENTIL [Concomitant]

REACTIONS (14)
  - Pulmonary embolism [Recovered/Resolved]
  - Deep vein thrombosis [None]
  - Deep vein thrombosis [Recovered/Resolved]
  - Dyspnoea [Recovered/Resolved]
  - Loss of consciousness [Recovered/Resolved]
  - Malaise [Recovered/Resolved]
  - Sinus operation [Recovered/Resolved]
  - Abdominal pain [None]
  - Injury [Recovered/Resolved]
  - Pain [None]
  - General physical health deterioration [Recovered/Resolved]
  - Anxiety [None]
  - Emotional distress [None]
  - Pain [Recovered/Resolved]
